FAERS Safety Report 5367670-5 (Version None)
Quarter: 2007Q2

REPORT INFORMATION
  Report Type: 
  Country: None (occurrence: None)
  Receive Date: 20070622
  Receipt Date: 20070110
  Transmission Date: 20071010
  Serious: No
  Sender: FDA-Public Use
  Company Number: US-ASTRAZENECA-2007UW00526

PATIENT
  Age: 14 Month
  Sex: Male

DRUGS (2)
  1. PULMICORT RESPULES [Suspect]
     Route: 055
     Dates: start: 20070108
  2. ALBUTEROL [Suspect]

REACTIONS (3)
  - CRYING [None]
  - MEDICATION ERROR [None]
  - PRURITUS [None]
